FAERS Safety Report 7641272-X (Version None)
Quarter: 2011Q3

REPORT INFORMATION
  Report Type: 
  Country: None (occurrence: None)
  Receive Date: 20110728
  Receipt Date: 20110721
  Transmission Date: 20111222
  Serious: Yes (Other)
  Sender: FDA-Public Use
  Company Number: JP-NAPPMUNDI-MAG-2011-0001520

PATIENT
  Sex: Female

DRUGS (18)
  1. OXYCODONE HCL [Suspect]
     Indication: CANCER PAIN
     Dosage: 40 MG, DAILY
     Route: 048
     Dates: start: 20110428, end: 20110503
  2. CODEINE SULFATE [Concomitant]
     Indication: METASTASES TO BREAST
     Dosage: UNK
     Route: 048
     Dates: end: 20110503
  3. ZONISAMIDE [Concomitant]
     Dosage: UNK
     Route: 048
  4. MAGMITT [Concomitant]
     Indication: PROPHYLAXIS
     Dosage: UNK
     Route: 048
     Dates: end: 20110502
  5. KEPPRA [Concomitant]
     Dosage: UNK
     Route: 048
  6. PREDNISOLONE [Concomitant]
     Indication: METASTASES TO BONE
  7. PREDNISOLONE [Concomitant]
     Indication: METASTASES TO BREAST
  8. PREDNISOLONE [Concomitant]
     Indication: MALIGNANT PLEURAL EFFUSION
  9. CODEINE SULFATE [Concomitant]
     Indication: METASTASES TO BONE
  10. CYTOTEC [Concomitant]
     Indication: PROPHYLAXIS
     Dosage: UNK
     Route: 048
     Dates: end: 20110503
  11. PREDNISOLONE [Concomitant]
     Indication: METASTASES TO LIVER
  12. CODEINE SULFATE [Concomitant]
     Indication: MALIGNANT PLEURAL EFFUSION
  13. SELBEX [Concomitant]
     Indication: PROPHYLAXIS
     Dosage: UNK
     Route: 048
     Dates: end: 20110502
  14. DEPAS [Concomitant]
     Dosage: UNK
     Route: 048
     Dates: end: 20110503
  15. OXYCODONE HCL [Suspect]
     Indication: CANCER PAIN
     Dosage: 5 MG, DAILY
     Route: 048
     Dates: start: 20110428, end: 20110503
  16. PREDNISOLONE [Concomitant]
     Indication: METASTASES TO CENTRAL NERVOUS SYSTEM
     Dosage: UNK
     Route: 048
     Dates: end: 20110503
  17. CODEINE SULFATE [Concomitant]
     Indication: METASTASES TO CENTRAL NERVOUS SYSTEM
  18. CODEINE SULFATE [Concomitant]
     Indication: METASTASES TO LIVER

REACTIONS (1)
  - INFLAMMATION [None]
